FAERS Safety Report 4749726-0 (Version None)
Quarter: 2005Q3

REPORT INFORMATION
  Report Type: 
  Country: None (occurrence: None)
  Receive Date: 20050822
  Receipt Date: 20050519
  Transmission Date: 20060218
  Serious: Yes (Hospitalization)
  Sender: FDA-Public Use
  Company Number: US-MERCK-0505USA02331

PATIENT
  Age: 67 Year
  Sex: Female
  Weight: 52 kg

DRUGS (20)
  1. VIOXX [Suspect]
     Indication: SHOULDER PAIN
     Route: 048
     Dates: start: 20001114, end: 20020401
  2. VIOXX [Suspect]
     Indication: NECK PAIN
     Route: 048
     Dates: start: 20001114, end: 20020401
  3. ALLEGRA [Concomitant]
     Route: 065
  4. ESTROGENS (UNSPECIFIED) [Concomitant]
     Indication: HORMONE REPLACEMENT THERAPY
     Route: 065
     Dates: start: 20000717
  5. HYZAAR [Concomitant]
     Indication: HYPERTENSION
     Route: 065
     Dates: start: 20000617
  6. SYNTHROID [Concomitant]
     Route: 065
  7. NORVASC [Concomitant]
     Indication: CARDIAC DISORDER
     Route: 065
     Dates: start: 20011016
  8. FLOMAX [Concomitant]
     Route: 065
  9. COUMADIN [Concomitant]
     Indication: THROMBOSIS
     Route: 065
     Dates: start: 20010821
  10. VERELAN [Concomitant]
     Route: 065
  11. LOSARTAN POTASSIUM [Concomitant]
     Indication: HYPERTENSION
     Route: 065
     Dates: start: 20000416
  12. PREMARIN [Concomitant]
     Indication: HORMONE REPLACEMENT THERAPY
     Route: 065
     Dates: start: 20000515
  13. BACTRIM [Concomitant]
     Route: 065
  14. CALAN [Concomitant]
     Indication: CARDIAC DISORDER
     Route: 065
     Dates: start: 20010516
  15. NEURONTIN [Concomitant]
     Route: 065
  16. SINEMET [Concomitant]
     Route: 065
  17. PREMPRO [Concomitant]
     Indication: HORMONE REPLACEMENT THERAPY
     Route: 065
     Dates: start: 20010821
  18. NYSTATIN [Concomitant]
     Route: 065
  19. ELAVIL [Concomitant]
     Route: 065
  20. COZAAR [Concomitant]
     Indication: HYPERTENSION
     Route: 065
     Dates: start: 20000516

REACTIONS (8)
  - CEREBROVASCULAR ACCIDENT [None]
  - DYSPNOEA [None]
  - GASTROOESOPHAGEAL REFLUX DISEASE [None]
  - HEART RATE IRREGULAR [None]
  - POLYTRAUMATISM [None]
  - RIB FRACTURE [None]
  - THROMBOSIS [None]
  - THYROID DISORDER [None]
